FAERS Safety Report 15694500 (Version 1)
Quarter: 2018Q4

REPORT INFORMATION
  Report Type: Spontaneous
  Country: US (occurrence: US)
  Receive Date: 20181206
  Receipt Date: 20181206
  Transmission Date: 20190205
  Serious: No
  Sender: FDA-Public Use
  Company Number: US-ENDO PHARMACEUTICALS INC-2017-006110

PATIENT
  Age: 59 Year
  Sex: Male
  Weight: 70.3 kg

DRUGS (3)
  1. XIAFLEX [Suspect]
     Active Substance: COLLAGENASE CLOSTRIDIUM HISTOLYTICUM
     Dosage: UNK UNK, UNKNOWN, INJECTION 1 OF CYCLE 1
     Route: 026
     Dates: start: 201710
  2. AFFITOR [Concomitant]
     Indication: PANCREATIC DISORDER
  3. XIAFLEX [Suspect]
     Active Substance: COLLAGENASE CLOSTRIDIUM HISTOLYTICUM
     Indication: PEYRONIE^S DISEASE
     Dosage: UNK UNK, UNKNOWN, INJECTION 2 OF CYCLE 1
     Route: 026
     Dates: start: 201710, end: 201710

REACTIONS (3)
  - Ejaculation disorder [Unknown]
  - Inappropriate schedule of product administration [Recovered/Resolved]
  - Drug ineffective [Unknown]

NARRATIVE: CASE EVENT DATE: 201710
